FAERS Safety Report 17928737 (Version 1)
Quarter: 2020Q2

REPORT INFORMATION
  Report Type: Spontaneous
  Country: US (occurrence: US)
  Receive Date: 20200616
  Receipt Date: 20200616
  Transmission Date: 20200714
  Serious: Yes (Hospitalization)
  Sender: FDA-Public Use
  Company Number: None

PATIENT
  Age: 29 Year
  Sex: Female
  Weight: 104.9 kg

DRUGS (3)
  1. FLUDARABINE [Concomitant]
     Active Substance: FLUDARABINE PHOSPHATE
  2. CD19/20 CART - 51.7 X 10^6 CELLS [Suspect]
     Active Substance: GENETICALLY-MODIFIED AUTOLOGOUS T CELLS NOS
     Indication: PRIMARY MEDIASTINAL LARGE B-CELL LYMPHOMA
     Dosage: ?          OTHER DOSE:51.7 X 10^6 CELLS;OTHER FREQUENCY:SINGLE;?
     Route: 042
     Dates: start: 20200520, end: 20200520
  3. CYCLOPHOSPHAMIDE. [Concomitant]
     Active Substance: CYCLOPHOSPHAMIDE

REACTIONS (6)
  - Pain [None]
  - Tachycardia [None]
  - Spinal fracture [None]
  - Pyrexia [None]
  - Pathological fracture [None]
  - Disease progression [None]

NARRATIVE: CASE EVENT DATE: 20200611
